FAERS Safety Report 5141994-9 (Version None)
Quarter: 2006Q4

REPORT INFORMATION
  Report Type: 
  Country: None (occurrence: None)
  Receive Date: 20061102
  Receipt Date: 20061024
  Transmission Date: 20070319
  Serious: Yes (Hospitalization)
  Sender: FDA-Public Use
  Company Number: NL-JNJFOC-20060805171

PATIENT
  Sex: Female
  Weight: 57 kg

DRUGS (8)
  1. INFLIXIMAB [Suspect]
     Dosage: INFUSION RECEIVED AT 09:00 UNTIL 11:30
     Route: 042
  2. INFLIXIMAB [Suspect]
     Dosage: INFUSION RECEIVED AT 09:00 UNTIL 11:45
     Route: 042
  3. INFLIXIMAB [Suspect]
     Dosage: INFUSION RECEIVED AT 09:15 UNTIL 11:45
     Route: 042
  4. INFLIXIMAB [Suspect]
     Indication: CROHN'S DISEASE
     Dosage: INFUSION RECEIVED AT 10:00 UNTIL 12:45
     Route: 042
  5. SODIUM CHLORIDE [Concomitant]
     Indication: HYPONATRAEMIA
     Route: 065
  6. POTASSIUM CHLORIDE [Concomitant]
     Indication: HYPONATRAEMIA
     Route: 065
  7. MAGNESIUM OXIDE [Concomitant]
     Indication: BLOOD MAGNESIUM DECREASED
     Route: 065
  8. CALCIUM CARBONATE [Concomitant]
     Indication: HYPONATRAEMIA
     Route: 065

REACTIONS (1)
  - LARYNGITIS [None]
